FAERS Safety Report 7239105-9 (Version None)
Quarter: 2011Q1

REPORT INFORMATION
  Report Type: 
  Country: None (occurrence: None)
  Receive Date: 20110121
  Receipt Date: 20101012
  Transmission Date: 20110831
  Serious: No
  Sender: FDA-Public Use
  Company Number: US-BAYER-201022474BCC

PATIENT
  Sex: Female
  Weight: 68.182 kg

DRUGS (8)
  1. ALEVE [Suspect]
     Indication: PAIN
     Dosage: UNK
  2. LEVOXYL [Concomitant]
     Dosage: 2 DF, HS
     Route: 048
  3. PREDNISONE [Concomitant]
  4. FISH OIL [Concomitant]
  5. MULTI-VITAMIN [Concomitant]
  6. ASPIRIN [Concomitant]
  7. CRANBERRY [Concomitant]
  8. CALCIUM [Concomitant]

REACTIONS (1)
  - NO ADVERSE EVENT [None]
